FAERS Safety Report 23541774 (Version 2)
Quarter: 2024Q1

REPORT INFORMATION
  Report Type: Spontaneous
  Country: US (occurrence: US)
  Receive Date: 20240220
  Receipt Date: 20240308
  Transmission Date: 20240410
  Serious: No
  Sender: FDA-Public Use
  Company Number: US-SA-SAC20240216000140

PATIENT
  Sex: Male

DRUGS (2)
  1. DUPIXENT [Suspect]
     Active Substance: DUPILUMAB
     Indication: Asthma
     Dosage: 300 MG, 1X
     Route: 058
  2. DUPIXENT [Suspect]
     Active Substance: DUPILUMAB
     Dosage: 300 MG, QOW
     Route: 058

REACTIONS (9)
  - Asthenia [Unknown]
  - Fatigue [Unknown]
  - Heart rate decreased [Unknown]
  - Myalgia [Unknown]
  - Dizziness [Unknown]
  - Arthralgia [Unknown]
  - Atrioventricular block [Unknown]
  - Product prescribing issue [Unknown]
  - Incorrect dose administered [Unknown]
